FAERS Safety Report 6263620-8 (Version None)
Quarter: 2009Q3

REPORT INFORMATION
  Report Type: 
  Country: None (occurrence: None)
  Receive Date: 20090710
  Receipt Date: 20090616
  Transmission Date: 20100115
  Serious: No
  Sender: FDA-Public Use
  Company Number: A0789746A

PATIENT
  Age: 46 Year
  Sex: Female

DRUGS (3)
  1. TYKERB [Suspect]
     Indication: BREAST CANCER
     Dosage: 5TAB AT NIGHT
     Route: 048
     Dates: start: 20090523
  2. ONE A DAY WOMEN'S FORMULA [Concomitant]
  3. CALCIUM [Concomitant]

REACTIONS (9)
  - ACNE [None]
  - DEHYDRATION [None]
  - DIARRHOEA [None]
  - FATIGUE [None]
  - NAUSEA [None]
  - RASH [None]
  - RASH ERYTHEMATOUS [None]
  - RASH PRURITIC [None]
  - WHITE BLOOD CELL COUNT DECREASED [None]
